FAERS Safety Report 6490246-3 (Version None)
Quarter: 2009Q4

REPORT INFORMATION
  Report Type: 
  Country: None (occurrence: None)
  Receive Date: 20091211
  Receipt Date: 20091204
  Transmission Date: 20100525
  Serious: Yes (Other)
  Sender: FDA-Public Use
  Company Number: JP-ROCHE-673893

PATIENT
  Age: 10 Year
  Sex: Female
  Weight: 28 kg

DRUGS (4)
  1. TAMIFLU [Suspect]
     Indication: INFLUENZA
     Dosage: DRUG: TAMIFLU DRY SYRUP 3%. 1.9G TWICE A DAY.
     Route: 048
     Dates: start: 20091124, end: 20091125
  2. MUCODYNE [Concomitant]
  3. KETOTEN [Concomitant]
     Dosage: DRUG: KETOTEN(KETOTIFEN FUMARATE).
  4. ACETAMINOPHEN [Concomitant]
     Dosage: DRUG: ACETAMINOPHEN(ACETAMINOPHEN). DOSE FORM: ORAL FORMULATION (NOT OTHERWISE SPECIFIED).

REACTIONS (3)
  - ABNORMAL BEHAVIOUR [None]
  - CRYING [None]
  - FEAR [None]
